FAERS Safety Report 13683814 (Version 1)
Quarter: 2017Q2

REPORT INFORMATION
  Report Type: Spontaneous
  Country: US (occurrence: US)
  Receive Date: 20170623
  Receipt Date: 20170623
  Transmission Date: 20170830
  Serious: No
  Sender: FDA-Public Use
  Company Number: US-IPSEN BIOPHARMACEUTICALS, INC.-2016-07436

PATIENT
  Age: 55 Year
  Sex: Female
  Weight: 68 kg

DRUGS (8)
  1. JUVEDERM [Concomitant]
     Active Substance: HYALURONIC ACID
     Dates: start: 20160630, end: 20160630
  2. DYSPORT [Suspect]
     Active Substance: ABOBOTULINUMTOXINA
     Indication: SKIN WRINKLING
     Dosage: 121.5 UNITS
     Route: 030
     Dates: start: 20160328, end: 20160328
  3. DYSPORT [Suspect]
     Active Substance: ABOBOTULINUMTOXINA
     Indication: SKIN WRINKLING
  4. DYSPORT [Suspect]
     Active Substance: ABOBOTULINUMTOXINA
     Indication: SKIN WRINKLING
  5. DYSPORT [Suspect]
     Active Substance: ABOBOTULINUMTOXINA
     Indication: OFF LABEL USE
  6. JUVEDERM [Concomitant]
     Active Substance: HYALURONIC ACID
     Indication: SKIN WRINKLING
     Dates: start: 20160303, end: 20160303
  7. JUVEDERM [Concomitant]
     Active Substance: HYALURONIC ACID
     Dates: start: 20160328, end: 20160328
  8. RADIESSE [Concomitant]
     Active Substance: TRIBASIC CALCIUM PHOSPHATE
     Indication: SKIN COSMETIC PROCEDURE
     Dates: start: 20160630, end: 20160630

REACTIONS (7)
  - Off label use [Unknown]
  - Overdose [Unknown]
  - Local swelling [Not Recovered/Not Resolved]
  - Eyelid ptosis [Recovering/Resolving]
  - Alopecia [Not Recovered/Not Resolved]
  - Eyelid oedema [Recovering/Resolving]
  - Periorbital oedema [Recovering/Resolving]

NARRATIVE: CASE EVENT DATE: 20160405
